FAERS Safety Report 8881837 (Version 2)
Quarter: 2012Q4

REPORT INFORMATION
  Report Type: 
  Country: FR (occurrence: FR)
  Receive Date: 20121102
  Receipt Date: 20121116
  Transmission Date: 20130627
  Serious: Yes (Hospitalization)
  Sender: FDA-Public Use
  Company Number: FR-BRISTOL-MYERS SQUIBB COMPANY-17071937

PATIENT
  Age: 54 Year
  Sex: Female
  Weight: 57 kg

DRUGS (4)
  1. REYATAZ CAPS 300 MG [Suspect]
     Indication: HIV INFECTION
     Dosage: Tabs
     Route: 048
     Dates: start: 20090520, end: 20120927
  2. TRUVADA [Suspect]
     Dosage: 1DF: 200mg/245mg
     Route: 048
     Dates: start: 20090520, end: 20120927
  3. NORVIR [Suspect]
     Route: 048
     Dates: start: 20090520, end: 20120927
  4. VOLTAREN [Suspect]

REACTIONS (2)
  - Renal colic [Recovered/Resolved]
  - Blood creatinine increased [Recovering/Resolving]
